FAERS Safety Report 9459141 (Version 1)
Quarter: 2013Q3

REPORT INFORMATION
  Report Type: Report from Study
  Country: US (occurrence: US)
  Receive Date: 20130814
  Receipt Date: 20130814
  Transmission Date: 20140515
  Serious: Yes (Other)
  Sender: FDA-Public Use
  Company Number: US-ROCHE-1260932

PATIENT
  Sex: Male

DRUGS (20)
  1. OMALIZUMAB [Suspect]
     Indication: ASTHMA
     Dosage: SMN STATES 1 EVERY 4 WEEKS
     Route: 058
     Dates: start: 20130615
  2. ASTEPRO [Concomitant]
     Route: 045
     Dates: start: 20111206
  3. BROVANA [Concomitant]
     Dosage: PER 2 ML, 2 ML IN THE AM
     Route: 065
  4. BUDESONIDE [Concomitant]
     Dosage: PER 2 ML, IN THE AM FOR 30 DAYS
     Route: 055
  5. CROMOLYN [Concomitant]
     Dosage: PER 2 ML, PRN FOR 30 DAYS
     Route: 055
  6. DULERA [Concomitant]
     Dosage: PUFFS, IN THE AM FOR 30 DAYS
     Route: 055
  7. EPIPEN [Concomitant]
     Dosage: AS DIRECTED
     Route: 030
  8. FORADIL [Concomitant]
     Dosage: IN THE AM FOR 30 DAYS
     Route: 055
  9. IPRATROPIUM [Concomitant]
  10. LEVALBUTEROL [Concomitant]
     Dosage: FOR 3 ML
     Route: 065
  11. LEVOCETIRIZINE [Concomitant]
     Route: 065
  12. PREDNISONE [Concomitant]
     Route: 065
  13. PROVENTIL HFA [Concomitant]
  14. PULMOCORE (GENERIC INGREDIENTS UNKNOWN) [Concomitant]
     Route: 065
  15. VENTOLIN [Concomitant]
  16. XOPENEX HFA [Concomitant]
     Dosage: PER ACTUATION
     Route: 065
  17. ZAFIRLUKAST [Concomitant]
     Dosage: AS DIRECTED FOR 30 DAYS
     Route: 065
  18. ZETONNA [Concomitant]
     Dosage: PER ACTUATION, 1 SPRAY
     Route: 045
  19. ZYFLO CR [Concomitant]
     Route: 048
  20. ALBUTEROL [Concomitant]

REACTIONS (2)
  - Upper respiratory tract infection [Unknown]
  - Anaphylactic reaction [Unknown]
